FAERS Safety Report 6544615-3 (Version None)
Quarter: 2010Q1

REPORT INFORMATION
  Report Type: 
  Country: None (occurrence: None)
  Receive Date: 20100121
  Receipt Date: 20100113
  Transmission Date: 20100710
  Serious: Yes (Disabling, Other)
  Sender: FDA-Public Use
  Company Number: PHBS2007JP14767

PATIENT
  Age: 39 Year
  Sex: Male
  Weight: 77 kg

DRUGS (16)
  1. CERTICAN [Suspect]
     Indication: HEART TRANSPLANT
     Dosage: 1.5 MG/D
     Route: 048
     Dates: start: 20070805, end: 20070822
  2. CERTICAN [Suspect]
     Dosage: 1.75 MG/D
     Route: 048
     Dates: start: 20070823, end: 20070905
  3. CERTICAN [Suspect]
     Dosage: 1.5 MG/D
     Route: 048
     Dates: start: 20070906, end: 20071010
  4. NEORAL [Suspect]
     Indication: HEART TRANSPLANT
     Dosage: 150 MG/DAY
     Route: 048
     Dates: start: 20010319, end: 20070801
  5. NEORAL [Suspect]
     Dosage: 200 MG/D
     Route: 048
     Dates: start: 20070801
  6. BAKTAR [Concomitant]
  7. NORVASC [Concomitant]
  8. LIPITOR [Concomitant]
  9. BUFERIN [Concomitant]
  10. RABEPRAZOLE SODIUM [Concomitant]
  11. URINORM [Concomitant]
  12. SODIUM BICARBONATE [Concomitant]
  13. CLARUTE [Concomitant]
  14. BLOPRESS [Concomitant]
  15. EMPECID [Concomitant]
     Route: 048
  16. MOBIC [Concomitant]
     Indication: PAIN
     Dosage: 1 TABLET/DAY
     Dates: start: 20070920, end: 20070928

REACTIONS (20)
  - ABASIA [None]
  - ALOPECIA [None]
  - ARTHRALGIA [None]
  - ARTHRITIS [None]
  - C-REACTIVE PROTEIN INCREASED [None]
  - CORONARY ARTERY STENOSIS [None]
  - DRUG LEVEL DECREASED [None]
  - DYSPHAGIA [None]
  - ERYTHROPENIA [None]
  - FEELING HOT [None]
  - GAIT DISTURBANCE [None]
  - HAEMATOCRIT DECREASED [None]
  - HAEMOGLOBIN DECREASED [None]
  - HAEMORRHOIDS [None]
  - PAIN [None]
  - PURULENCE [None]
  - PYREXIA [None]
  - RED BLOOD CELL COUNT DECREASED [None]
  - SPEECH DISORDER [None]
  - STOMATITIS [None]
